FAERS Safety Report 8217203-0 (Version None)
Quarter: 2012Q1

REPORT INFORMATION
  Report Type: 
  Country: None (occurrence: None)
  Receive Date: 20120314
  Receipt Date: 20120305
  Transmission Date: 20120608
  Serious: Yes (Death, Life-Threatening)
  Sender: FDA-Public Use
  Company Number: ABR_00386_2012

PATIENT
  Age: 80 Year
  Sex: Female

DRUGS (13)
  1. ERYTHROMYCIN [Suspect]
     Indication: PRODUCT USED FOR UNKNOWN INDICATION
     Dosage: (3 GM (3 GM, 1 IN 1 D) UNKNOWN)
     Dates: start: 20110420, end: 20110426
  2. PREVISCAN /00789001/ [Concomitant]
  3. LASIX [Concomitant]
  4. NEOMERCAZOLE (NEOMERCAZOLE) (NOT SPECIFIED) [Suspect]
     Indication: HYPERTHYROIDISM
     Dosage: (40 MG (20 MG, 2 IN 1 D) UNKNOWN), (60 MG (20 MG, 3 IN 1 D) UNKNOWN)
     Dates: start: 20110316, end: 20110328
  5. NEOMERCAZOLE (NEOMERCAZOLE) (NOT SPECIFIED) [Suspect]
     Indication: HYPERTHYROIDISM
     Dosage: (40 MG (20 MG, 2 IN 1 D) UNKNOWN), (60 MG (20 MG, 3 IN 1 D) UNKNOWN)
     Dates: start: 20110329, end: 20110426
  6. LEVOFLOXACIN [Suspect]
     Indication: PRODUCT USED FOR UNKNOWN INDICATION
     Dosage: (1 GM (1 GM IN 1 D), (500 MG (500 MG IN 1D) UNKNOWN
     Dates: start: 20110415, end: 20110415
  7. LEVOFLOXACIN [Suspect]
     Indication: PRODUCT USED FOR UNKNOWN INDICATION
     Dosage: (1 GM (1 GM IN 1 D), (500 MG (500 MG IN 1D) UNKNOWN
     Dates: start: 20110416, end: 20110426
  8. FLUTICASONE PROPIONATE/SALMETEROL [Concomitant]
  9. MULTAQ [Suspect]
     Indication: PRODUCT USED FOR UNKNOWN INDICATION
     Dosage: (800 MG (400 MG, 2 IN 1 D) UNKNOWN)
     Dates: start: 20110317, end: 20110426
  10. AMLODIPINE BESYLATE [Concomitant]
  11. AUGMENTIN [Suspect]
     Indication: PRODUCT USED FOR UNKNOWN INDICATION
     Dosage: (3 GM (1 GM, 3 IN 1 D) UNKNOWN), (3 GM, (1 GM 3 IN 1 D) UNKNOWN)
     Dates: start: 20110414, end: 20110421
  12. AUGMENTIN [Suspect]
     Indication: PRODUCT USED FOR UNKNOWN INDICATION
     Dosage: (3 GM (1 GM, 3 IN 1 D) UNKNOWN), (3 GM, (1 GM 3 IN 1 D) UNKNOWN)
     Dates: start: 20110328, end: 20110408
  13. PULMICORT [Concomitant]

REACTIONS (7)
  - OVERDOSE [None]
  - DIALYSIS [None]
  - BRONCHITIS [None]
  - RENAL TUBULAR DISORDER [None]
  - RENAL FAILURE ACUTE [None]
  - DYSPNOEA [None]
  - INTERNATIONAL NORMALISED RATIO INCREASED [None]
